FAERS Safety Report 6630220-7 (Version None)
Quarter: 2010Q1

REPORT INFORMATION
  Report Type: 
  Country: None (occurrence: None)
  Receive Date: 20100311
  Receipt Date: 20100301
  Transmission Date: 20100710
  Serious: Yes (Other)
  Sender: FDA-Public Use
  Company Number: A0848176A

PATIENT
  Age: 51 Year
  Sex: Male

DRUGS (1)
  1. PROMACTA [Suspect]
     Indication: HEPATITIS C
     Dates: end: 20091231

REACTIONS (1)
  - GASTROINTESTINAL HAEMORRHAGE [None]
